FAERS Safety Report 11939279 (Version 2)
Quarter: 2016Q1

REPORT INFORMATION
  Report Type: Report from Study
  Country: US (occurrence: US)
  Receive Date: 20160122
  Receipt Date: 20160205
  Transmission Date: 20160526
  Serious: Yes (Death, Hospitalization)
  Sender: FDA-Public Use
  Company Number: US-ACTELION-A-NJ2016-130170

PATIENT
  Age: 90 Year
  Sex: Female

DRUGS (14)
  1. TYVASO [Concomitant]
     Active Substance: TREPROSTINIL
  2. TRAMADOL. [Concomitant]
     Active Substance: TRAMADOL
  3. PRAMIPEXOLE. [Concomitant]
     Active Substance: PRAMIPEXOLE
  4. MICARDIS [Concomitant]
     Active Substance: TELMISARTAN
  5. ALBUTEROL. [Concomitant]
     Active Substance: ALBUTEROL
  6. MACITENTAN [Suspect]
     Active Substance: MACITENTAN
     Indication: PULMONARY ARTERIAL HYPERTENSION
     Dosage: 10 MG, QD
     Route: 048
     Dates: start: 20151228
  7. COUMADIN [Concomitant]
     Active Substance: WARFARIN SODIUM
  8. FLONASE [Concomitant]
     Active Substance: FLUTICASONE PROPIONATE
  9. LEVOTHYROXINE. [Concomitant]
     Active Substance: LEVOTHYROXINE
  10. ALLOPURINOL. [Concomitant]
     Active Substance: ALLOPURINOL
  11. SPIRIVA [Concomitant]
     Active Substance: TIOTROPIUM BROMIDE MONOHYDRATE
  12. PANTOPRAZOLE [Concomitant]
     Active Substance: PANTOPRAZOLE SODIUM
  13. ALPRAZOLAM. [Concomitant]
     Active Substance: ALPRAZOLAM
  14. TYLENOL [Concomitant]
     Active Substance: ACETAMINOPHEN

REACTIONS (4)
  - Death [Fatal]
  - Pulmonary hypertension [Unknown]
  - Disease progression [Unknown]
  - Pneumonia [Unknown]

NARRATIVE: CASE EVENT DATE: 20160123
